FAERS Safety Report 18366789 (Version 1)
Quarter: 2020Q4

REPORT INFORMATION
  Report Type: Spontaneous
  Country: CN (occurrence: CN)
  Receive Date: 20201009
  Receipt Date: 20201009
  Transmission Date: 20210114
  Serious: Yes (Hospitalization, Other)
  Sender: FDA-Public Use
  Company Number: CN-PFIZER INC-2020385574

PATIENT
  Age: 37 Year
  Sex: Female
  Weight: 41.7 kg

DRUGS (6)
  1. CYTOSAR [Suspect]
     Active Substance: CYTARABINE
     Indication: ACUTE MYELOID LEUKAEMIA
     Dosage: 200 MG, 1X/DAY
     Route: 041
     Dates: start: 20200819
  2. ZAVEDOS [Suspect]
     Active Substance: IDARUBICIN
     Dosage: 10 MG, 1X/DAY
     Route: 041
     Dates: start: 20200821, end: 20200821
  3. SODIUM CHLORIDE. [Suspect]
     Active Substance: SODIUM CHLORIDE
     Indication: VEHICLE SOLUTION USE
     Dosage: 250 ML, 1X/DAY
     Route: 041
     Dates: start: 20200819
  4. SODIUM CHLORIDE. [Suspect]
     Active Substance: SODIUM CHLORIDE
     Dosage: 30 ML, 1X/DAY
     Route: 041
     Dates: start: 20200821, end: 20200821
  5. ZAVEDOS [Suspect]
     Active Substance: IDARUBICIN
     Indication: ACUTE MYELOID LEUKAEMIA
     Dosage: 20 MG, 1X/DAY
     Route: 041
     Dates: start: 20200819, end: 20200820
  6. SODIUM CHLORIDE. [Suspect]
     Active Substance: SODIUM CHLORIDE
     Dosage: 30 ML, 1X/DAY
     Route: 041
     Dates: start: 20200819, end: 20200820

REACTIONS (2)
  - Purpura [Recovering/Resolving]
  - Pruritus [Recovering/Resolving]

NARRATIVE: CASE EVENT DATE: 20200823
